FAERS Safety Report 14294714 (Version 5)
Quarter: 2018Q3

REPORT INFORMATION
  Report Type: Spontaneous
  Country: FR (occurrence: FR)
  Receive Date: 20171218
  Receipt Date: 20180824
  Transmission Date: 20181010
  Serious: Yes (Disabling)
  Sender: FDA-Public Use
  Company Number: FR-ROCHE-2040536

PATIENT
  Age: 32 Year
  Sex: Male

DRUGS (33)
  1. TEMERIT [Suspect]
     Active Substance: NEBIVOLOL
     Indication: CARDIAC DISORDER
     Route: 048
     Dates: start: 2011, end: 20110509
  2. PAROXETINE. [Suspect]
     Active Substance: PAROXETINE
     Indication: PRODUCT USED FOR UNKNOWN INDICATION
     Dosage: 2 TO 3 WEEKS
     Route: 048
     Dates: start: 20110201
  3. VALIUM [Concomitant]
     Active Substance: DIAZEPAM
     Dosage: ROUTE: PARENTERAL
     Route: 065
     Dates: start: 20101115, end: 20101115
  4. ATARAX [Suspect]
     Active Substance: HYDROXYZINE HYDROCHLORIDE
     Indication: PRODUCT USED FOR UNKNOWN INDICATION
     Route: 048
     Dates: start: 20120131, end: 201207
  5. TEMERIT [Suspect]
     Active Substance: NEBIVOLOL
     Indication: CARDIAC DISORDER
     Route: 048
     Dates: start: 20110510, end: 201207
  6. SEROPRAM (CITALOPRAM HYDROBROMIDE) [Suspect]
     Active Substance: CITALOPRAM HYDROBROMIDE
     Indication: PRODUCT USED FOR UNKNOWN INDICATION
     Route: 048
     Dates: start: 20110318
  7. NUREFLEX [Concomitant]
     Active Substance: IBUPROFEN
     Route: 048
     Dates: start: 20101213
  8. ETIFOXINE [Concomitant]
     Active Substance: ETIFOXINE
     Route: 065
  9. RIVOTRIL [Suspect]
     Active Substance: CLONAZEPAM
     Indication: NECK PAIN
     Route: 065
     Dates: start: 20110510
  10. RIVOTRIL [Suspect]
     Active Substance: CLONAZEPAM
     Route: 065
     Dates: start: 20110303, end: 20110327
  11. RIVOTRIL [Suspect]
     Active Substance: CLONAZEPAM
     Dosage: 5?8 DROPS
     Route: 065
     Dates: start: 20110328
  12. LAROXYL [Suspect]
     Active Substance: AMITRIPTYLINE HYDROCHLORIDE
     Indication: NECK PAIN
     Dosage: 5?8 DROPS
     Route: 065
     Dates: start: 20110219
  13. UVEDOSE [Concomitant]
     Active Substance: CHOLECALCIFEROL
     Indication: PRODUCT USED FOR UNKNOWN INDICATION
     Dosage: 1000000 IU
     Route: 065
     Dates: start: 20110219
  14. TANGANIL [Concomitant]
     Active Substance: ACETYLLEUCINE
     Route: 048
     Dates: start: 20110303
  15. RIVOTRIL [Suspect]
     Active Substance: CLONAZEPAM
     Dosage: 5?8 DROPS
     Route: 065
     Dates: start: 20110219, end: 20110302
  16. ATARAX [Suspect]
     Active Substance: HYDROXYZINE HYDROCHLORIDE
     Route: 065
  17. TETRAZEPAM [Suspect]
     Active Substance: TETRAZEPAM
     Indication: PRODUCT USED FOR UNKNOWN INDICATION
     Route: 048
     Dates: start: 20110726
  18. TETRAZEPAM [Suspect]
     Active Substance: TETRAZEPAM
     Route: 048
     Dates: start: 20110228
  19. TEMERIT [Suspect]
     Active Substance: NEBIVOLOL
     Indication: CARDIAC DISORDER
     Route: 048
     Dates: start: 20110718
  20. MIOREL (FRANCE) [Concomitant]
     Active Substance: METHOCARBAMOL
     Route: 048
     Dates: start: 20101210
  21. DOLIPRANE [Concomitant]
     Active Substance: ACETAMINOPHEN
     Route: 048
     Dates: start: 20110328
  22. RIVOTRIL [Suspect]
     Active Substance: CLONAZEPAM
     Route: 065
     Dates: start: 20110718, end: 201110
  23. DI?ANTALVIC [Suspect]
     Active Substance: ACETAMINOPHEN\PROPOXYPHENE HYDROCHLORIDE
     Indication: PAIN
     Route: 048
     Dates: start: 20100606
  24. IXEL [Suspect]
     Active Substance: MILNACIPRAN HYDROCHLORIDE
     Indication: PANIC ATTACK
     Route: 048
     Dates: start: 20110322
  25. MIOREL (FRANCE) [Concomitant]
     Active Substance: METHOCARBAMOL
     Route: 048
     Dates: start: 20101213
  26. MIOREL (FRANCE) [Concomitant]
     Active Substance: METHOCARBAMOL
     Route: 048
     Dates: start: 20100606
  27. PRAXINOR (FRANCE) [Concomitant]
     Indication: PRODUCT USED FOR UNKNOWN INDICATION
     Route: 048
     Dates: start: 20101127
  28. MIOREL (FRANCE) [Concomitant]
     Active Substance: METHOCARBAMOL
     Route: 048
     Dates: start: 20110201
  29. SOLUPRED (FRANCE) [Concomitant]
     Active Substance: PREDNISOLONE SODIUM METAZOATE
     Route: 048
     Dates: start: 20110726
  30. TETRAZEPAM [Suspect]
     Active Substance: TETRAZEPAM
     Route: 048
     Dates: start: 20110705
  31. DOLIPRANE [Concomitant]
     Active Substance: ACETAMINOPHEN
     Route: 048
     Dates: start: 20101213
  32. STRESAM [Concomitant]
     Active Substance: ETIFOXINE
     Route: 048
     Dates: start: 20120327
  33. DOLIPRANE [Concomitant]
     Active Substance: ACETAMINOPHEN
     Route: 048
     Dates: start: 20110201

REACTIONS (23)
  - Erectile dysfunction [Recovering/Resolving]
  - Hallucination, auditory [Recovered/Resolved]
  - Personal relationship issue [Recovered/Resolved]
  - Post-traumatic stress disorder [Recovered/Resolved]
  - Agoraphobia [Recovered/Resolved]
  - Tinnitus [Recovered/Resolved]
  - Anxiety [Recovered/Resolved]
  - Psychotic disorder [Recovered/Resolved]
  - Intervertebral disc disorder [Unknown]
  - Pain in extremity [Unknown]
  - Tachycardia [Recovered/Resolved]
  - Panic attack [Recovered/Resolved]
  - Suicidal ideation [Recovered/Resolved]
  - Hypoacusis [Recovered/Resolved]
  - Malaise [Recovered/Resolved]
  - Musculoskeletal pain [Unknown]
  - Memory impairment [Recovered/Resolved]
  - Drug intolerance [Unknown]
  - Neurosis [Recovered/Resolved]
  - Dyspnoea [Unknown]
  - Hypertonia [Unknown]
  - Asthenia [Unknown]
  - Visual impairment [Recovered/Resolved]

NARRATIVE: CASE EVENT DATE: 20110318
